FAERS Safety Report 10460841 (Version 1)
Quarter: 2014Q3

REPORT INFORMATION
  Report Type: Report from Study
  Country: US (occurrence: US)
  Receive Date: 20140918
  Receipt Date: 20140918
  Transmission Date: 20150326
  Serious: Yes (Hospitalization, Other)
  Sender: FDA-Public Use
  Company Number: US-BRISTOL-MYERS SQUIBB COMPANY-21366133

PATIENT
  Age: 50 Year
  Sex: Male
  Weight: 77.6 kg

DRUGS (1)
  1. IPILIMUMAB [Suspect]
     Active Substance: IPILIMUMAB
     Indication: MALIGNANT MELANOMA
     Dosage: I.THPY:3MG/KG,90MIN,Q3WKSX4DOSES?M.THPY:Q12 WKS ON WKS24,36,48+60?T.DOSE:1842.9 MG,09OCT13
     Route: 042
     Dates: start: 20130114

REACTIONS (2)
  - Fall [Unknown]
  - Tendon rupture [Recovered/Resolved with Sequelae]

NARRATIVE: CASE EVENT DATE: 20131120
